FAERS Safety Report 6354264-8 (Version None)
Quarter: 2009Q3

REPORT INFORMATION
  Report Type: 
  Country: None (occurrence: None)
  Receive Date: 20090909
  Receipt Date: 20090901
  Transmission Date: 20100115
  Serious: Yes (Hospitalization)
  Sender: FDA-Public Use
  Company Number: 2009010074

PATIENT
  Age: 68 Year
  Sex: Female
  Weight: 115 kg

DRUGS (11)
  1. TREANDA [Suspect]
     Indication: GLIOBLASTOMA MULTIFORME
     Dosage: 225 MG, 2 CONSECUTIVE DAYS EVERY 28 DAYS), INTRAVENOUS
     Route: 042
     Dates: start: 20090810, end: 20090811
  2. LEVEMIR INSULIN        (INSULIN DETEMIR) [Concomitant]
  3. ATOVASTATIN (ATORVASTATIN) [Concomitant]
  4. DEXAMETHASONE TAB [Concomitant]
  5. DOCUSATE (DOCUSATE) [Concomitant]
  6. BISACODYL (BISACODYL) [Concomitant]
  7. COZAAR [Concomitant]
  8. PAXIL [Concomitant]
  9. TRIAMTERENE AND HYDROCHLOROTHIAZIDE [Concomitant]
  10. LANTUS [Concomitant]
  11. PANTOPRAZOLE SODIUM [Concomitant]

REACTIONS (12)
  - ASTHENIA [None]
  - BLOOD GLUCOSE INCREASED [None]
  - CATHETER RELATED INFECTION [None]
  - FALL [None]
  - FATIGUE [None]
  - FUNGAL INFECTION [None]
  - FUNGAL SKIN INFECTION [None]
  - KLEBSIELLA INFECTION [None]
  - PLATELET COUNT DECREASED [None]
  - POLLAKIURIA [None]
  - STAPHYLOCOCCAL INFECTION [None]
  - URINARY TRACT INFECTION [None]
